FAERS Safety Report 9264237 (Version 1)
Quarter: 2013Q2

REPORT INFORMATION
  Report Type: Spontaneous
  Country: US (occurrence: US)
  Receive Date: 20130430
  Receipt Date: 20130430
  Transmission Date: 20140414
  Serious: No
  Sender: FDA-Public Use
  Company Number: US-009507513-1304USA014966

PATIENT
  Sex: Female
  Weight: 81.63 kg

DRUGS (2)
  1. NUVARING [Suspect]
     Indication: UTERINE LEIOMYOMA
     Dosage: UNK, FREQUENCY: 3 WEEKS IN ONE WEEK RING FREE BREAK
     Route: 067
     Dates: start: 201207
  2. IRON (UNSPECIFIED) [Concomitant]

REACTIONS (3)
  - Rubber sensitivity [Unknown]
  - Vulvovaginal discomfort [Unknown]
  - Fungal infection [Unknown]
